FAERS Safety Report 4993303-3 (Version None)
Quarter: 2006Q2

REPORT INFORMATION
  Report Type: 
  Country: None (occurrence: None)
  Receive Date: 20060505
  Receipt Date: 20060217
  Transmission Date: 20061013
  Serious: Yes (Other)
  Sender: FDA-Public Use
  Company Number: PHEH2006US02352

PATIENT
  Age: 57 Year
  Sex: Female

DRUGS (7)
  1. GLEEVEC [Suspect]
     Dosage: 400 MG, QD
     Route: 048
     Dates: start: 20010601, end: 20060221
  2. GLEEVEC [Suspect]
     Dosage: 200 MG, QD
     Route: 048
     Dates: start: 20060222
  3. COUMADIN [Concomitant]
     Indication: PORTAL VEIN THROMBOSIS
     Dosage: 7.5 MG, QOD
     Route: 048
  4. COUMADIN [Concomitant]
     Dosage: 5 MG, QOD
     Route: 048
  5. NORVASC [Concomitant]
     Indication: HYPERTENSION
     Dosage: 5 MG, QOD
     Route: 048
  6. COZAAR [Concomitant]
     Indication: HYPERTENSION
     Dosage: 50 MG, QOD
     Route: 048
  7. DYAZIDE [Concomitant]
     Indication: HYPERTENSION
     Dosage: 50 MG, QD
     Route: 048

REACTIONS (3)
  - AZOTAEMIA [None]
  - NEPHRITIS INTERSTITIAL [None]
  - RENAL FAILURE CHRONIC [None]
